FAERS Safety Report 12481593 (Version 1)
Quarter: 2016Q2

REPORT INFORMATION
  Report Type: Spontaneous
  Country: US (occurrence: US)
  Receive Date: 20160620
  Receipt Date: 20160620
  Transmission Date: 20160815
  Serious: No
  Sender: FDA-Public Use
  Company Number: US-PFIZER INC-2016279827

PATIENT
  Sex: Male

DRUGS (2)
  1. LYRICA [Suspect]
     Active Substance: PREGABALIN
     Indication: NEUROPATHY PERIPHERAL
     Dosage: 100 MG, DAILY
  2. LYRICA [Suspect]
     Active Substance: PREGABALIN
     Indication: BACK INJURY
     Dosage: 75 MG, DAILY

REACTIONS (2)
  - Gait disturbance [Unknown]
  - Pain in extremity [Unknown]
